FAERS Safety Report 21063814 (Version 3)
Quarter: 2022Q3

REPORT INFORMATION
  Report Type: Other
  Country: AR (occurrence: AR)
  Receive Date: 20220711
  Receipt Date: 20220928
  Transmission Date: 20221027
  Serious: Yes (Other)
  Sender: FDA-Public Use
  Company Number: AR-002147023-NVSC2021AR254288

PATIENT
  Age: 54 Year
  Sex: Female

DRUGS (3)
  1. XOLAIR [Suspect]
     Active Substance: OMALIZUMAB
     Indication: Asthma
     Dosage: 750 MG, QMO
     Route: 058
     Dates: start: 20210408, end: 20220624
  2. SERETIDE [Concomitant]
     Active Substance: FLUTICASONE PROPIONATE\SALMETEROL XINAFOATE
     Indication: Product used for unknown indication
     Dosage: 1 PUFF IN THE MORNING AND NIGHT
     Route: 065
  3. COMBIVENT [Concomitant]
     Active Substance: ALBUTEROL SULFATE\IPRATROPIUM BROMIDE
     Indication: Product used for unknown indication
     Dosage: UNK
     Route: 065

REACTIONS (11)
  - Asphyxia [Unknown]
  - Asthmatic crisis [Unknown]
  - Illness [Unknown]
  - Feeding disorder [Unknown]
  - Pharyngeal swelling [Unknown]
  - Abdominal discomfort [Unknown]
  - Hypersensitivity [Unknown]
  - Biliary colic [Unknown]
  - Nervous system disorder [Unknown]
  - Abdominal pain upper [Unknown]
  - Incorrect dose administered [Unknown]
